FAERS Safety Report 26011230 (Version 3)
Quarter: 2025Q4

REPORT INFORMATION
  Report Type: Spontaneous
  Country: EU (occurrence: EU)
  Receive Date: 20251107
  Receipt Date: 20251218
  Transmission Date: 20260118
  Serious: Yes (Other)
  Sender: BRISTOL-MYERS SQUIBB COMPANY
  Company Number: EU-BRISTOL-MYERS SQUIBB COMPANY-2025-149014

PATIENT
  Age: 29 Year
  Sex: Female
  Weight: 55.3 kg

DRUGS (18)
  1. APIXABAN [Suspect]
     Active Substance: APIXABAN
     Indication: Product used for unknown indication
  2. OPSUMIT [Suspect]
     Active Substance: MACITENTAN
     Indication: Pulmonary arterial hypertension
     Route: 048
     Dates: start: 20141124, end: 20150330
  3. VENTAVIS [Suspect]
     Active Substance: ILOPROST
     Indication: Product used for unknown indication
     Route: 055
     Dates: end: 201505
  4. SILDENAFIL [Suspect]
     Active Substance: SILDENAFIL
     Indication: Pulmonary arterial hypertension
     Route: 048
  5. SILDENAFIL [Suspect]
     Active Substance: SILDENAFIL
     Route: 048
     Dates: start: 20150105, end: 20150323
  6. SILDENAFIL [Suspect]
     Active Substance: SILDENAFIL
     Route: 048
     Dates: start: 20150416, end: 20151010
  7. SILDENAFIL [Suspect]
     Active Substance: SILDENAFIL
     Route: 048
  8. AZATHIOPRINE [Suspect]
     Active Substance: AZATHIOPRINE
     Indication: Product used for unknown indication
     Dosage: 50 MG, DAILY
     Route: 048
     Dates: start: 20150416, end: 20151010
  9. TINZAPARIN [Suspect]
     Active Substance: TINZAPARIN
     Indication: Pulmonary arterial hypertension
     Dates: start: 20150408, end: 201510
  10. TINZAPARIN [Suspect]
     Active Substance: TINZAPARIN
     Dosage: 20000 [IE/D ]
     Route: 058
     Dates: start: 20150416, end: 20151010
  11. PREDNISOLONE [Suspect]
     Active Substance: PREDNISOLONE
     Indication: Systemic lupus erythematosus
     Route: 048
     Dates: start: 20150416, end: 20151010
  12. PREDNISOLONE [Suspect]
     Active Substance: PREDNISOLONE
     Dates: start: 20150727, end: 20150907
  13. HYDROXYCHLOROQUINE [Suspect]
     Active Substance: HYDROXYCHLOROQUINE
     Indication: Systemic lupus erythematosus
     Route: 048
     Dates: start: 20150428, end: 20151010
  14. HYDROXYCHLOROQUINE [Suspect]
     Active Substance: HYDROXYCHLOROQUINE
     Route: 048
     Dates: start: 20150727, end: 20150907
  15. TREPROSTINIL [Suspect]
     Active Substance: TREPROSTINIL
     Indication: Product used for unknown indication
  16. MINERALS\VITAMINS [Concomitant]
     Active Substance: MINERALS\VITAMINS
     Indication: Prophylaxis of neural tube defect
     Route: 048
     Dates: start: 20150330, end: 20150428
  17. BETAMETHASONE [Concomitant]
     Active Substance: BETAMETHASONE
     Indication: Maternal therapy to enhance foetal lung maturity
     Route: 030
     Dates: start: 20150916, end: 20150917
  18. ATOSIBAN [Concomitant]
     Active Substance: ATOSIBAN
     Indication: Tocolysis
     Dates: start: 20151010, end: 20151010

REACTIONS (2)
  - Premature delivery [Unknown]
  - Maternal exposure during pregnancy [Recovered/Resolved]

NARRATIVE: CASE EVENT DATE: 20151010
